FAERS Safety Report 4480887-7 (Version None)
Quarter: 2004Q4

REPORT INFORMATION
  Report Type: 
  Country: None (occurrence: None)
  Receive Date: 20041020
  Receipt Date: 20041020
  Transmission Date: 20050328
  Serious: Yes (Hospitalization, Other)
  Sender: FDA-Public Use
  Company Number: None

PATIENT
  Age: 84 Year
  Sex: Female
  Weight: 62 kg

DRUGS (3)
  1. DEPAKOTE [Suspect]
     Indication: DEMENTIA
     Dosage: 500 MG PO BID
     Route: 048
     Dates: start: 20040903, end: 20040913
  2. RISPERIDONE [Concomitant]
  3. DONEPEZIL HCL [Concomitant]

REACTIONS (3)
  - BACK PAIN [None]
  - FALL [None]
  - LIVER FUNCTION TEST ABNORMAL [None]
